FAERS Safety Report 9068905 (Version 1)
Quarter: 2013Q1

REPORT INFORMATION
  Report Type: Spontaneous
  Country: US (occurrence: None)
  Receive Date: 20130213
  Receipt Date: 20130213
  Transmission Date: 20140127
  Serious: No
  Sender: FDA-Public Use
  Company Number: None

PATIENT
  Age: 76 Year
  Sex: Female
  Weight: 92.99 kg

DRUGS (2)
  1. AVELOX, 400 MG, SCHERING CORP. [Suspect]
     Indication: BRONCHITIS
     Route: 002
     Dates: start: 20120804, end: 20120810
  2. PROAIR HFA ALBUTEROL SULFATE, 108 IVAX [Suspect]
     Indication: BRONCHITIS
     Route: 002
     Dates: start: 20120803, end: 20120811

REACTIONS (1)
  - Dyspnoea [None]
